FAERS Safety Report 8541867-5 (Version None)
Quarter: 2012Q3

REPORT INFORMATION
  Report Type: 
  Country: None (occurrence: None)
  Receive Date: 20120726
  Receipt Date: 20120413
  Transmission Date: 20120928
  Serious: No
  Sender: FDA-Public Use
  Company Number: US-ASTRAZENECA-2011SE54951

PATIENT
  Age: 64 Year
  Sex: Female

DRUGS (2)
  1. SEROQUEL [Suspect]
     Dosage: TWO TABLETS HS
     Route: 048
  2. SEROQUEL [Suspect]
     Route: 048

REACTIONS (4)
  - CONVERSION DISORDER [None]
  - MEMORY IMPAIRMENT [None]
  - INTENTIONAL DRUG MISUSE [None]
  - NERVE INJURY [None]
